FAERS Safety Report 5414105-X (Version None)
Quarter: 2007Q3

REPORT INFORMATION
  Report Type: 
  Country: None (occurrence: None)
  Receive Date: 20070814
  Receipt Date: 20070802
  Transmission Date: 20080115
  Serious: Yes (Other)
  Sender: FDA-Public Use
  Company Number: US-PFIZER INC-2007065335

PATIENT
  Sex: Female

DRUGS (1)
  1. LYRICA [Suspect]
     Indication: CONVULSION

REACTIONS (1)
  - TYPE 2 DIABETES MELLITUS [None]
